FAERS Safety Report 12907369 (Version 1)
Quarter: 2016Q4

REPORT INFORMATION
  Report Type: Spontaneous
  Country: US (occurrence: US)
  Receive Date: 20161103
  Receipt Date: 20161103
  Transmission Date: 20170207
  Serious: No
  Sender: FDA-Public Use
  Company Number: US-BAYER-2016-204312

PATIENT
  Age: 84 Year
  Sex: Female

DRUGS (1)
  1. CLIMARA [Suspect]
     Active Substance: ESTRADIOL
     Indication: OSTEOPOROSIS POSTMENOPAUSAL

REACTIONS (3)
  - Product adhesion issue [None]
  - Drug dose omission [None]
  - Intentional product use issue [None]

NARRATIVE: CASE EVENT DATE: 201609
